FAERS Safety Report 9557298 (Version 1)
Quarter: 2013Q3

REPORT INFORMATION
  Report Type: Spontaneous
  Country: JP (occurrence: None)
  Receive Date: 20130924
  Receipt Date: 20130924
  Transmission Date: 20140515
  Serious: Yes (Other)
  Sender: FDA-Public Use
  Company Number: SYM-2013-10824

PATIENT
  Sex: 0

DRUGS (3)
  1. 5-FU [Suspect]
     Indication: NEOPLASM MALIGNANT
  2. CISPLATIN [Suspect]
     Indication: NEOPLASM MALIGNANT
  3. NEDAPLATIN [Suspect]
     Indication: NEOPLASM MALIGNANT

REACTIONS (1)
  - Stomatitis [None]
